FAERS Safety Report 7588824 (Version 3)
Quarter: 2012Q4

REPORT INFORMATION
  Report Type: 
  Country: US (occurrence: US)
  Receive Date: 20100916
  Receipt Date: 20121029
  Transmission Date: 20130627
  Serious: Yes (Hospitalization, Disabling, Other)
  Sender: FDA-Public Use
  Company Number: US-PFIZER INC-2010113457

PATIENT
  Age: 36 Year
  Sex: Male

DRUGS (9)
  1. CHANTIX [Suspect]
     Indication: SMOKING CESSATION THERAPY
     Dosage: 0.5mg/1mg
     Dates: start: 200902, end: 200904
  2. PAXIL [Concomitant]
     Indication: DEPRESSION
     Dosage: UNK
     Dates: start: 2004
  3. REMERON [Concomitant]
     Indication: DEPRESSION
     Dosage: UNK
     Dates: start: 2004
  4. BUSPAR [Concomitant]
     Indication: ANXIETY
     Dosage: UNK
     Dates: start: 2004
  5. XANAX [Concomitant]
     Indication: ANXIETY
     Dosage: UNK
     Dates: start: 2004
  6. TEMAZEPAM [Concomitant]
     Indication: INSOMNIA
     Dosage: UNK
     Dates: start: 2004
  7. NEURONTIN [Concomitant]
     Indication: PAIN
     Dosage: UNK
     Dates: start: 2000
  8. SOMA [Concomitant]
     Indication: PAIN
     Dosage: UNK
     Dates: start: 2000
  9. TRAMADOL [Concomitant]
     Indication: PAIN
     Dosage: UNK
     Dates: start: 2000

REACTIONS (7)
  - Intentional self-injury [Unknown]
  - Depression [Not Recovered/Not Resolved]
  - Abnormal behaviour [Unknown]
  - Anxiety [Not Recovered/Not Resolved]
  - Obsessive-compulsive disorder [Not Recovered/Not Resolved]
  - Skin ulcer [Unknown]
  - Scar [Not Recovered/Not Resolved]
